FAERS Safety Report 9850924 (Version 1)
Quarter: 2014Q1

REPORT INFORMATION
  Report Type: Spontaneous
  Country: FR (occurrence: None)
  Receive Date: 20140124
  Receipt Date: 20140124
  Transmission Date: 20141002
  Serious: Yes (Other)
  Sender: FDA-Public Use
  Company Number: FR-ZYDUS-002477

PATIENT
  Age: 48 Year
  Sex: Male

DRUGS (1)
  1. TRAMADOL (TRAMADOL) [Suspect]

REACTIONS (5)
  - Intentional overdose [None]
  - Psychiatric symptom [None]
  - Completed suicide [None]
  - Neurological symptom [None]
  - Dyspepsia [None]
